FAERS Safety Report 7913609-5 (Version None)
Quarter: 2011Q4

REPORT INFORMATION
  Report Type: 
  Country: None (occurrence: None)
  Receive Date: 20111115
  Receipt Date: 20111110
  Transmission Date: 20120403
  Serious: No
  Sender: FDA-Public Use
  Company Number: US-PFIZER INC-2011275996

PATIENT
  Sex: Male
  Weight: 82.5 kg

DRUGS (15)
  1. LOVASTATIN [Concomitant]
     Dosage: 10 MG, UNK
  2. ASCORBIC ACID [Concomitant]
     Dosage: 500 MG, UNK
  3. SUTENT [Suspect]
     Dosage: 12.5 MG, (TAKE 1-2 TABLETS DAILY FOR 4 WEEKS THEN 2 WEEKS OFF)
     Route: 048
  4. FISH OIL [Concomitant]
     Dosage: UNK
  5. POTASSIUM [Concomitant]
     Dosage: 25 MEQ, UNK
  6. OMEPRAZOLE [Concomitant]
     Dosage: 20 MG, UNK
  7. TAMSULOSIN HYDROCHLORIDE [Concomitant]
     Dosage: 0.4 MG, UNK
  8. CALCIUM [Concomitant]
     Dosage: UNK
  9. SUTENT [Suspect]
     Dosage: 25 MG, DAILY (FOR 4 WEEKS)
     Route: 048
     Dates: start: 20111111
  10. METOPROLOL [Concomitant]
     Dosage: 25 MG, UNK
  11. NEXIUM [Concomitant]
     Dosage: 20 MG, UNK
  12. STOOL SOFTENER [Concomitant]
     Dosage: 100 MG, UNK
  13. MAGNESIUM [Concomitant]
     Dosage: 300 MG, UNK
  14. VITAMIN D [Concomitant]
     Dosage: 400 UNIT
  15. ACETYLSALICYLIC ACID [Concomitant]
     Dosage: 81 MG, UNK

REACTIONS (2)
  - DIARRHOEA [None]
  - OEDEMA PERIPHERAL [None]
